FAERS Safety Report 17490245 (Version 1)
Quarter: 2020Q1

REPORT INFORMATION
  Report Type: Spontaneous
  Country: US (occurrence: US)
  Receive Date: 20200303
  Receipt Date: 20200303
  Transmission Date: 20200409
  Serious: No
  Sender: FDA-Public Use
  Company Number: US-AKORN PHARMACEUTICALS-2019AKN00178

PATIENT
  Age: 13 Year
  Sex: Male
  Weight: 68.03 kg

DRUGS (2)
  1. MYORISAN [Suspect]
     Active Substance: ISOTRETINOIN
     Indication: ACNE
     Dosage: 30 MG, 1X/DAY
     Route: 048
     Dates: start: 201901
  2. ASPIRIN. [Concomitant]
     Active Substance: ASPIRIN
     Dosage: UNK, AS NEEDED

REACTIONS (3)
  - Ear discomfort [Not Recovered/Not Resolved]
  - Tinnitus [Recovered/Resolved]
  - Off label use [Not Recovered/Not Resolved]

NARRATIVE: CASE EVENT DATE: 201901
